FAERS Safety Report 25945623 (Version 1)
Quarter: 2025Q4

REPORT INFORMATION
  Report Type: Spontaneous
  Country: US (occurrence: US)
  Receive Date: 20251021
  Receipt Date: 20251021
  Transmission Date: 20260117
  Serious: No
  Sender: ELI LILLY AND COMPANY
  Company Number: US-ELI_LILLY_AND_COMPANY-US202510012655

PATIENT
  Age: 55 Year
  Sex: Female

DRUGS (2)
  1. ZEPBOUND [Suspect]
     Active Substance: TIRZEPATIDE
     Indication: Product used for unknown indication
     Dosage: 10 MG, WEEKLY (1/W)
     Route: 065
  2. ZEPBOUND [Suspect]
     Active Substance: TIRZEPATIDE
     Dosage: 10 MG, UNKNOWN (TWO DAYS EARLY FROM SCHEDULED WEEKLY DOSE)
     Route: 065

REACTIONS (5)
  - Accidental overdose [Unknown]
  - Inappropriate schedule of product administration [Unknown]
  - Hunger [Unknown]
  - Drug ineffective [Unknown]
  - Weight increased [Unknown]
